FAERS Safety Report 8463109-1 (Version None)
Quarter: 2012Q2

REPORT INFORMATION
  Report Type: 
  Country: None (occurrence: None)
  Receive Date: 20120625
  Receipt Date: 20120618
  Transmission Date: 20120825
  Serious: Yes (Hospitalization)
  Sender: FDA-Public Use
  Company Number: US-GILEAD-2012-0056819

PATIENT
  Sex: Female

DRUGS (1)
  1. LETAIRIS [Suspect]
     Indication: PRODUCT USED FOR UNKNOWN INDICATION
     Dosage: 10 MG, UNK
     Route: 048
     Dates: start: 20110623

REACTIONS (7)
  - CHEST PAIN [None]
  - BRONCHOSPASM [None]
  - SKIN ULCER [None]
  - INCREASED UPPER AIRWAY SECRETION [None]
  - BLOOD IRON DECREASED [None]
  - NASAL CONGESTION [None]
  - PAIN IN EXTREMITY [None]
